FAERS Safety Report 17832699 (Version 3)
Quarter: 2020Q2

REPORT INFORMATION
  Report Type: Spontaneous
  Country: BE (occurrence: BE)
  Receive Date: 20200528
  Receipt Date: 20200623
  Transmission Date: 20200714
  Serious: Yes (Disabling, Other)
  Sender: FDA-Public Use
  Company Number: BE-ADVANZ PHARMA-202005005612

PATIENT

DRUGS (8)
  1. FOLIUMZUUR [Concomitant]
     Active Substance: FOLIC ACID
     Indication: COVID-19
     Dosage: UNK
  2. LEVORICHTER 30 [Concomitant]
     Indication: COVID-19
     Dosage: UNK
  3. BEFACT [Concomitant]
     Indication: COVID-19
     Dosage: UNK
  4. PARACETAMOL [Concomitant]
     Active Substance: ACETAMINOPHEN
     Indication: COVID-19
     Dosage: UNK
  5. HYDROXYCHLOROQUINE SULFATE (AUTHORIZED GENERIC),PLAQUENIL [Suspect]
     Active Substance: HYDROXYCHLOROQUINE SULFATE
     Indication: PRODUCT USE IN UNAPPROVED INDICATION
  6. C-WILL [Concomitant]
     Dosage: UNK
  7. HYDROXYCHLOROQUINE SULFATE (AUTHORIZED GENERIC),PLAQUENIL [Suspect]
     Active Substance: HYDROXYCHLOROQUINE SULFATE
     Indication: CORONAVIRUS INFECTION
     Dosage: 200 MG, BID (Q12H)
     Route: 048
     Dates: start: 20200415, end: 20200420
  8. FOLIC ACID. [Concomitant]
     Active Substance: FOLIC ACID
     Indication: COVID-19
     Dosage: UNK

REACTIONS (6)
  - Heart rate increased [Not Recovered/Not Resolved]
  - Tachycardia [Not Recovered/Not Resolved]
  - Vertigo [Not Recovered/Not Resolved]
  - Angina pectoris [Not Recovered/Not Resolved]
  - Dizziness [Not Recovered/Not Resolved]
  - Off label use [Unknown]

NARRATIVE: CASE EVENT DATE: 20200415
